FAERS Safety Report 7910174-3 (Version None)
Quarter: 2011Q4

REPORT INFORMATION
  Report Type: 
  Country: None (occurrence: None)
  Receive Date: 20111111
  Receipt Date: 20111104
  Transmission Date: 20120403
  Serious: Yes (Hospitalization)
  Sender: FDA-Public Use
  Company Number: US-US-EMD SERONO, INC.-7093977

PATIENT
  Sex: Female
  Weight: 81 kg

DRUGS (5)
  1. ANXIETY MEDICATION [Concomitant]
     Indication: ANXIETY
  2. COUMADIN [Concomitant]
     Indication: THROMBOSIS
     Dates: end: 20110910
  3. HIGH BLOOD PRESSURE MEDICATION [Concomitant]
     Indication: HYPERTENSION
  4. REBIF [Suspect]
     Indication: MULTIPLE SCLEROSIS
     Route: 058
     Dates: start: 20100629
  5. IBUPROFEN [Concomitant]
     Indication: ARTHRALGIA

REACTIONS (4)
  - INTERVERTEBRAL DISC DEGENERATION [None]
  - CENTRAL NERVOUS SYSTEM LESION [None]
  - FALL [None]
  - AMNESIA [None]
